FAERS Safety Report 8946115 (Version 1)
Quarter: 2012Q4

REPORT INFORMATION
  Report Type: 
  Country: US (occurrence: US)
  Receive Date: 20121205
  Receipt Date: 20121205
  Transmission Date: 20130627
  Serious: Yes (Other)
  Sender: FDA-Public Use
  Company Number: US-BAYER-2012-126478

PATIENT
  Age: 62 Year
  Sex: Male

DRUGS (11)
  1. BAYER GENUINE ASPIRIN ORIGINAL STRENGTH [Suspect]
  2. PLAVIX [Suspect]
     Route: 048
  3. DASATINIB [Suspect]
     Indication: CHRONIC MYELOGENOUS LEUKEMIA
     Dosage: 100 mg, QD
     Route: 048
     Dates: start: 20121016, end: 20121030
  4. DASATINIB [Suspect]
     Indication: CHRONIC MYELOGENOUS LEUKEMIA
     Dosage: 50 mg, QD
     Route: 048
     Dates: start: 20121129
  5. CASODEX [Concomitant]
  6. VALSARTAN [Concomitant]
  7. LANTUS [Concomitant]
  8. LISINOPRIL [Concomitant]
  9. LOVASTATIN [Concomitant]
  10. METOPROLOL [Concomitant]
  11. OMEPRAZOLE [Concomitant]

REACTIONS (3)
  - Chronic myeloid leukaemia [None]
  - Pulmonary oedema [None]
  - Bone marrow oedema [None]
